FAERS Safety Report 6999941-0 (Version None)
Quarter: 2010Q3

REPORT INFORMATION
  Report Type: 
  Country: None (occurrence: None)
  Receive Date: 20100920
  Receipt Date: 20100916
  Transmission Date: 20110219
  Serious: Yes (Other)
  Sender: FDA-Public Use
  Company Number: DE-SANOFI-AVENTIS-2010SA050121

PATIENT
  Age: 44 Year
  Sex: Male
  Weight: 147 kg

DRUGS (3)
  1. TELFAST [Suspect]
     Route: 048
     Dates: start: 20041011, end: 20050601
  2. ANTIHYPERTENSIVES [Concomitant]
     Indication: PRODUCT USED FOR UNKNOWN INDICATION
  3. CHOLESTEROL- AND TRIGLYCERIDE REDUCERS [Concomitant]
     Indication: PRODUCT USED FOR UNKNOWN INDICATION

REACTIONS (2)
  - LIVER DISORDER [None]
  - SPLEEN DISORDER [None]
